FAERS Safety Report 5700432-5 (Version None)
Quarter: 2008Q2

REPORT INFORMATION
  Report Type: 
  Country: None (occurrence: None)
  Receive Date: 20080407
  Receipt Date: 20080320
  Transmission Date: 20081010
  Serious: No
  Sender: FDA-Public Use
  Company Number: 8031078

PATIENT
  Age: 15 Month
  Sex: Female

DRUGS (3)
  1. KEPPRA [Suspect]
     Indication: CONVULSION
     Dosage: PO
     Route: 048
     Dates: start: 20080201
  2. DIASTAT [Concomitant]
  3. TRILEPTAL [Concomitant]

REACTIONS (1)
  - INCORRECT DOSE ADMINISTERED [None]
